FAERS Safety Report 12920397 (Version 3)
Quarter: 2018Q3

REPORT INFORMATION
  Report Type: Spontaneous
  Country: US (occurrence: US)
  Receive Date: 20161107
  Receipt Date: 20180806
  Transmission Date: 20181010
  Serious: Yes (Hospitalization)
  Sender: FDA-Public Use
  Company Number: US-BAYER-2016-211560

PATIENT
  Age: 32 Year
  Sex: Female
  Weight: 53.06 kg

DRUGS (2)
  1. DEPO?PROVERA [Concomitant]
     Active Substance: MEDROXYPROGESTERONE ACETATE
     Indication: CONTRACEPTION
  2. MIRENA [Suspect]
     Active Substance: LEVONORGESTREL
     Indication: CONTRACEPTION
     Dosage: 20 MCG/24HR, CONT
     Route: 015
     Dates: start: 20080516, end: 20161102

REACTIONS (8)
  - Device use issue [Recovered/Resolved]
  - Uterine polyp [Recovered/Resolved]
  - Device issue [Recovered/Resolved]
  - Hypomenorrhoea [Recovered/Resolved]
  - Device difficult to use [Recovered/Resolved]
  - Amenorrhoea [Recovered/Resolved]
  - Menstruation irregular [Recovered/Resolved]
  - Sepsis [Recovered/Resolved]

NARRATIVE: CASE EVENT DATE: 201304
